FAERS Safety Report 6103289-6 (Version None)
Quarter: 2009Q1

REPORT INFORMATION
  Report Type: 
  Country: None (occurrence: None)
  Receive Date: 20090305
  Receipt Date: 20090302
  Transmission Date: 20090719
  Serious: Yes (Death, Other)
  Sender: FDA-Public Use
  Company Number: US-CELGENEUS-163-20785-09030012

PATIENT

DRUGS (1)
  1. THALOMID [Suspect]
     Indication: RENAL CELL CARCINOMA
     Route: 048

REACTIONS (10)
  - CONSTIPATION [None]
  - DEEP VEIN THROMBOSIS [None]
  - DYSPNOEA [None]
  - FATIGUE [None]
  - MALAISE [None]
  - NAUSEA [None]
  - NEUROPATHY PERIPHERAL [None]
  - PAIN [None]
  - RASH [None]
  - RENAL CELL CARCINOMA RECURRENT [None]
